FAERS Safety Report 5203858-1 (Version None)
Quarter: 2007Q1

REPORT INFORMATION
  Report Type: 
  Country: None (occurrence: None)
  Receive Date: 20070110
  Receipt Date: 20070104
  Transmission Date: 20070707
  Serious: Yes (Other)
  Sender: FDA-Public Use
  Company Number: NL-SANOFI-SYNTHELABO-F01200700011

PATIENT
  Sex: Female
  Weight: 66.1 kg

DRUGS (5)
  1. AMLODIPINE [Concomitant]
     Dates: start: 20060701
  2. METOPROLOL SUCCINATE [Concomitant]
     Dosage: UNK
     Route: 065
     Dates: start: 20060701
  3. BEVACIZUMAB [Suspect]
     Dosage: UNK
     Route: 042
     Dates: start: 20061127, end: 20061127
  4. FLUOROURACIL [Suspect]
     Dosage: 505 MG BOLUS THEN 1300 MG CONTINUOUS INFUSION
     Route: 042
     Dates: start: 20070102, end: 20070103
  5. OXALIPLATIN [Suspect]
     Indication: HEPATIC NEOPLASM MALIGNANT NON-RESECTABLE
     Route: 042
     Dates: start: 20070102, end: 20070102

REACTIONS (2)
  - ATRIAL FIBRILLATION [None]
  - DYSPNOEA [None]
